FAERS Safety Report 9470503 (Version 1)
Quarter: 2013Q3

REPORT INFORMATION
  Report Type: Spontaneous
  Country: IT (occurrence: IT)
  Receive Date: 20130822
  Receipt Date: 20130822
  Transmission Date: 20140515
  Serious: Yes (Hospitalization)
  Sender: FDA-Public Use
  Company Number: IT-RANBAXY-2013R1-72240

PATIENT
  Age: 1 Year
  Sex: Male
  Weight: 13 kg

DRUGS (2)
  1. AMOXICILLIN/CLAVULANIC ACID [Suspect]
     Indication: FEELING COLD
     Dosage: UNK
     Route: 048
     Dates: start: 20130629, end: 20130701
  2. PARACETAMOL [Suspect]
     Indication: PYREXIA
     Dosage: 250 MG, DAILY
     Route: 054
     Dates: start: 20130628, end: 20130721

REACTIONS (3)
  - Diarrhoea [Unknown]
  - Musculoskeletal pain [Unknown]
  - Rash [Unknown]
